FAERS Safety Report 7005219-1 (Version None)
Quarter: 2010Q3

REPORT INFORMATION
  Report Type: 
  Country: None (occurrence: None)
  Receive Date: 20100921
  Receipt Date: 20100913
  Transmission Date: 20110219
  Serious: Yes (Hospitalization)
  Sender: FDA-Public Use
  Company Number: DE-EISAI INC.-E2090-01234-SPO-DE

PATIENT
  Sex: Female
  Weight: 77.5 kg

DRUGS (2)
  1. ZONEGRAN [Suspect]
     Indication: EPILEPSY
     Dosage: 300 MG
     Route: 048
     Dates: start: 20070911, end: 20100707
  2. SIMVALIP [Concomitant]
     Dosage: 10 MG DAILY

REACTIONS (1)
  - NEPHROLITHIASIS [None]
